FAERS Safety Report 9791434 (Version 2)
Quarter: 2014Q2

REPORT INFORMATION
  Report Type: Spontaneous
  Country: TR (occurrence: TR)
  Receive Date: 20140101
  Receipt Date: 20140428
  Transmission Date: 20141212
  Serious: Yes (Hospitalization)
  Sender: FDA-Public Use
  Company Number: PHHY2013TR152198

PATIENT
  Age: 11 Month
  Sex: Female

DRUGS (3)
  1. OCTREOTIDE [Suspect]
     Indication: ASCITES
     Dosage: 100 UG/HR (60-100 MCG/HOUR)
     Route: 042
  2. OCTREOTIDE [Suspect]
     Dosage: 100 UG, BID
     Route: 058
  3. DIURETICS [Concomitant]
     Indication: ASCITES

REACTIONS (4)
  - Pyrexia [Recovered/Resolved]
  - Pneumonia [Recovered/Resolved]
  - Abdominal distension [Recovered/Resolved]
  - Hyperglycaemia [Recovered/Resolved]
